FAERS Safety Report 5304660-2 (Version None)
Quarter: 2007Q2

REPORT INFORMATION
  Report Type: 
  Country: None (occurrence: None)
  Receive Date: 20070416
  Receipt Date: 20070403
  Transmission Date: 20071010
  Serious: Yes (Hospitalization)
  Sender: FDA-Public Use
  Company Number: 1-14772707/MED-07069

PATIENT
  Age: 73 Year
  Sex: Female
  Weight: 33.3 kg

DRUGS (3)
  1. METFORMIN HCL [Suspect]
     Indication: DIABETES MELLITUS NON-INSULIN-DEPENDENT
     Dosage: 500MG DAILY, ORAL
     Route: 048
  2. NATEGLINIDE [Concomitant]
  3. PIOGLITAZONE [Concomitant]

REACTIONS (3)
  - HEPATITIS ACUTE [None]
  - HEPATOTOXICITY [None]
  - LIVER INJURY [None]
